FAERS Safety Report 7884408-8 (Version None)
Quarter: 2011Q4

REPORT INFORMATION
  Report Type: 
  Country: None (occurrence: None)
  Receive Date: 20111102
  Receipt Date: 20110908
  Transmission Date: 20120403
  Serious: No
  Sender: FDA-Public Use
  Company Number: US-ASTRAZENECA-2011SE53979

PATIENT
  Age: 73 Year
  Sex: Female

DRUGS (8)
  1. VANDETANIB [Suspect]
     Indication: THYROID CANCER
     Route: 048
  2. CALCIUM ANTACID [Concomitant]
  3. GARLIQUW [Concomitant]
  4. HAWTHORNE [Concomitant]
  5. ZANTAC [Concomitant]
  6. ASPIRIN ADULT LOW STRENGHT [Concomitant]
  7. ALPHA-LIPOIC ACID [Concomitant]
  8. VITAMIN E BLEND [Concomitant]

REACTIONS (1)
  - SPEECH DISORDER [None]
